FAERS Safety Report 11126849 (Version 1)
Quarter: 2015Q2

REPORT INFORMATION
  Report Type: Spontaneous
  Country: BR (occurrence: BR)
  Receive Date: 20150520
  Receipt Date: 20150520
  Transmission Date: 20150821
  Serious: Yes (Hospitalization, Other)
  Sender: FDA-Public Use
  Company Number: PHHY2015BR059460

PATIENT
  Age: 40 Year
  Sex: Male

DRUGS (4)
  1. EVEROLIMUS [Suspect]
     Active Substance: EVEROLIMUS
     Indication: RENAL TRANSPLANT
     Route: 065
  2. TACROLIMUS. [Suspect]
     Active Substance: TACROLIMUS
     Indication: RENAL TRANSPLANT
     Route: 065
  3. THYMOGLOBULIN [Suspect]
     Active Substance: LAPINE T-LYMPHOCYTE IMMUNE GLOBULIN
     Indication: RENAL TRANSPLANT
     Route: 065
  4. PREDNISONE. [Suspect]
     Active Substance: PREDNISONE
     Indication: RENAL TRANSPLANT
     Dosage: 5 MG, UNK
     Route: 065

REACTIONS (8)
  - Blood sodium increased [Unknown]
  - Diabetic ketoacidosis [Unknown]
  - Renal tubular necrosis [Unknown]
  - Diarrhoea [Unknown]
  - Blood potassium increased [Unknown]
  - Haemolytic uraemic syndrome [Unknown]
  - Occult blood positive [Unknown]
  - Blood pressure increased [Unknown]
